FAERS Safety Report 20475629 (Version 1)
Quarter: 2022Q1

REPORT INFORMATION
  Report Type: Spontaneous
  Country: US (occurrence: US)
  Receive Date: 20220215
  Receipt Date: 20220215
  Transmission Date: 20220423
  Serious: No
  Sender: FDA-Public Use
  Company Number: US-009507513-2202USA003420

PATIENT
  Sex: Female

DRUGS (8)
  1. PRINIVIL [Suspect]
     Active Substance: LISINOPRIL
     Indication: Hypertension
     Dosage: 10 MG, UNK
     Route: 048
     Dates: start: 201708
  2. NAPROXEN [Suspect]
     Active Substance: NAPROXEN
     Indication: Pain
     Dosage: 10 MG, UNK
     Dates: start: 201407, end: 2021
  3. PROVENTIL [Concomitant]
     Active Substance: ALBUTEROL
     Indication: Wheezing
     Dosage: UNK
     Dates: start: 201307
  4. PROVENTIL [Concomitant]
     Active Substance: ALBUTEROL
     Indication: Cough
  5. ADVAIR HFA [Concomitant]
     Active Substance: FLUTICASONE PROPIONATE\SALMETEROL XINAFOATE
     Indication: Wheezing
     Dosage: 250 MCG - 50 MCG, UNK
     Dates: start: 201206
  6. ONDANSETRON HCL [Concomitant]
     Active Substance: ONDANSETRON HYDROCHLORIDE
     Indication: Nausea
     Dosage: 8 MG, UNK
     Dates: start: 201206
  7. PROAIR HFA [Concomitant]
     Active Substance: ALBUTEROL SULFATE
     Indication: Wheezing
     Dosage: 90 MCG, UNK
     Dates: start: 201105
  8. METFORMIN [Concomitant]
     Active Substance: METFORMIN HYDROCHLORIDE
     Indication: Diabetes mellitus
     Dosage: 500 MG, UNK
     Dates: start: 198407

REACTIONS (1)
  - Labelled drug-drug interaction issue [Unknown]

NARRATIVE: CASE EVENT DATE: 20170801
